FAERS Safety Report 21147695 (Version 1)
Quarter: 2022Q3

REPORT INFORMATION
  Report Type: Spontaneous
  Country: US (occurrence: None)
  Receive Date: 20220728
  Receipt Date: 20220728
  Transmission Date: 20221027
  Serious: Yes (Disabling)
  Sender: FDA-Public Use
  Company Number: None

PATIENT
  Age: 79 Year
  Sex: Female
  Weight: 90 kg

DRUGS (2)
  1. METOPROLOL SUCCINATE [Suspect]
     Active Substance: METOPROLOL SUCCINATE
     Indication: Hypertension
     Dosage: OTHER QUANTITY : 30 TABLET(S);?FREQUENCY : DAILY;?
     Route: 048
  2. TOPROL XL [Suspect]
     Active Substance: METOPROLOL SUCCINATE
     Indication: Hypertension
     Dosage: OTHER QUANTITY : 90 TABLET(S);?FREQUENCY : DAILY;?
     Route: 048

REACTIONS (14)
  - Fatigue [None]
  - Dizziness [None]
  - Insomnia [None]
  - Constipation [None]
  - Arthralgia [None]
  - Alopecia [None]
  - Chest tube insertion [None]
  - Osteoporosis [None]
  - Bone density decreased [None]
  - Nightmare [None]
  - Glucose tolerance impaired [None]
  - Neuropathy peripheral [None]
  - Glycosylated haemoglobin increased [None]
  - Contraindicated product administered [None]

NARRATIVE: CASE EVENT DATE: 20220201
